FAERS Safety Report 13775652 (Version 1)
Quarter: 2017Q3

REPORT INFORMATION
  Report Type: Spontaneous
  Country: US (occurrence: US)
  Receive Date: 20170720
  Receipt Date: 20170720
  Transmission Date: 20171127
  Serious: No
  Sender: FDA-Public Use
  Company Number: US-BAUSCH-BL-2017-003660

PATIENT
  Age: 64 Year
  Sex: Male
  Weight: 68.1 kg

DRUGS (3)
  1. BESIVANCE [Suspect]
     Active Substance: BESIFLOXACIN
     Indication: CONJUNCTIVITIS
     Dosage: ONE DROP IN BOTH EYES, VOLUME OF BOTTLE IS 5 ML
     Route: 065
     Dates: start: 20161202, end: 20161209
  2. ZYLET [Suspect]
     Active Substance: LOTEPREDNOL ETABONATE\TOBRAMYCIN
     Indication: EYE DISORDER
     Dosage: ONE DROP IN BOTH EYES, VOLUME OF BOTTLE IS 5 ML
     Route: 065
     Dates: start: 20161210
  3. ZYLET [Suspect]
     Active Substance: LOTEPREDNOL ETABONATE\TOBRAMYCIN
     Route: 065

REACTIONS (2)
  - Drug ineffective [Unknown]
  - Dry eye [Not Recovered/Not Resolved]

NARRATIVE: CASE EVENT DATE: 20161209
